FAERS Safety Report 9934184 (Version 2)
Quarter: 2014Q1

REPORT INFORMATION
  Report Type: Report from Study
  Country: PH (occurrence: PH)
  Receive Date: 20140228
  Receipt Date: 20140228
  Transmission Date: 20141002
  Serious: Yes (Other)
  Sender: FDA-Public Use
  Company Number: PH-B.I. PHARMACEUTICALS,INC./RIDGEFIELD-2014-BI-07325BI

PATIENT
  Age: 70 Year
  Sex: Male
  Weight: 67.3 kg

DRUGS (11)
  1. BI 10773 [Suspect]
     Indication: TYPE 2 DIABETES MELLITUS
     Dosage: 25 MG
     Route: 048
     Dates: start: 20110621, end: 20140208
  2. GLICLAZIDE (DIAMICRON MR) [Concomitant]
     Indication: TYPE 2 DIABETES MELLITUS
     Dosage: 60 MG
     Route: 048
     Dates: start: 20130630, end: 20140211
  3. MIXTARD HUMAN RECOMBINANT INSULIN 70/30 [Concomitant]
     Indication: TYPE 2 DIABETES MELLITUS
     Dosage: 38 U
     Route: 058
     Dates: start: 20140212
  4. ATORVASTATIN [Concomitant]
     Indication: DYSLIPIDAEMIA
     Dosage: 20 MG
     Route: 048
     Dates: start: 2007, end: 20140207
  5. CILOSTAZOLE [Concomitant]
     Indication: CEREBROVASCULAR ACCIDENT
     Dosage: 50 MG
     Route: 048
     Dates: start: 20110202, end: 20140207
  6. AMLODIPINE [Concomitant]
     Indication: HYPERTENSION
     Dosage: 5 MG
     Route: 048
     Dates: start: 20110415
  7. POLYNERVE [Concomitant]
     Indication: VITAMIN SUPPLEMENTATION
     Dosage: 1000 MG
     Route: 048
     Dates: start: 2010
  8. ASPIRIN [Concomitant]
     Indication: CEREBROVASCULAR ACCIDENT
     Dosage: 80 MG
     Route: 048
     Dates: start: 20111201
  9. COLCHICINE [Concomitant]
     Indication: GOUTY ARTHRITIS
     Dosage: 1.5 MG
     Route: 048
     Dates: start: 20130330, end: 20140207
  10. CELECOXIB [Concomitant]
     Indication: PERIARTHRITIS
     Dosage: 400 MG
     Route: 048
     Dates: start: 20130104, end: 20140207
  11. SYMBICORT TURBOHALER [Concomitant]
     Indication: CHRONIC OBSTRUCTIVE PULMONARY DISEASE
     Dosage: FORMULATION: INHALER,DOSE PER APPLICATION AND DAILY DOSE: 80/4.5?G
     Route: 055
     Dates: start: 201006, end: 20140207

REACTIONS (1)
  - Hepatic cirrhosis [Not Recovered/Not Resolved]
